FAERS Safety Report 11119981 (Version 1)
Quarter: 2015Q2

REPORT INFORMATION
  Report Type: Spontaneous
  Country: FR (occurrence: FR)
  Receive Date: 20150518
  Receipt Date: 20150518
  Transmission Date: 20150821
  Serious: Yes (Life-Threatening, Hospitalization)
  Sender: FDA-Public Use
  Company Number: FR-ELI_LILLY_AND_COMPANY-FR201505001171

PATIENT
  Age: 62 Year
  Sex: Male

DRUGS (12)
  1. FUROSEMIDE. [Concomitant]
     Active Substance: FUROSEMIDE
  2. ALFUZOSINE [Concomitant]
     Active Substance: ALFUZOSIN HYDROCHLORIDE
  3. DAFALGAN [Concomitant]
     Active Substance: ACETAMINOPHEN
  4. ZOLPIDEM [Concomitant]
     Active Substance: ZOLPIDEM\ZOLPIDEM TARTRATE
  5. CYMBALTA [Suspect]
     Active Substance: DULOXETINE HYDROCHLORIDE
     Indication: PRODUCT USED FOR UNKNOWN INDICATION
     Dosage: UNK UNK, UNKNOWN
     Route: 048
     Dates: start: 20150206, end: 20150209
  6. AMLODIPINE [Concomitant]
     Active Substance: AMLODIPINE BESYLATE
  7. KARDEGIC [Concomitant]
     Active Substance: ASPIRIN LYSINE
  8. OLANZAPINE. [Suspect]
     Active Substance: OLANZAPINE
     Indication: PRODUCT USED FOR UNKNOWN INDICATION
     Dosage: UNK, UNKNOWN
     Route: 065
  9. OFLOCET                            /00731801/ [Suspect]
     Active Substance: OFLOXACIN
     Indication: PROSTATITIS ESCHERICHIA COLI
     Dosage: UNK UNK, UNKNOWN
     Route: 048
     Dates: start: 20150131, end: 20150209
  10. ATORVASTATIN [Concomitant]
     Active Substance: ATORVASTATIN
  11. MIRTAZAPINE. [Concomitant]
     Active Substance: MIRTAZAPINE
  12. DEXERYL                            /00557601/ [Concomitant]
     Active Substance: GLYCERIN\PARAFFIN

REACTIONS (6)
  - Apathy [Unknown]
  - Blood glucose increased [Unknown]
  - Diabetes mellitus [Unknown]
  - Cholestasis [Recovered/Resolved]
  - Prostatitis Escherichia coli [Unknown]
  - Hepatic steatosis [Unknown]

NARRATIVE: CASE EVENT DATE: 20150209
